FAERS Safety Report 13509262 (Version 2)
Quarter: 2017Q2

REPORT INFORMATION
  Report Type: Report from Study
  Country: None (occurrence: US)
  Receive Date: 20170503
  Receipt Date: 20170505
  Transmission Date: 20170830
  Serious: Yes (Other)
  Sender: FDA-Public Use
  Company Number: US-ABBVIE-17K-163-1953544-00

PATIENT
  Age: 67 Year
  Sex: Female
  Weight: 86.26 kg

DRUGS (7)
  1. SYNTHROID [Concomitant]
     Active Substance: LEVOTHYROXINE SODIUM
     Indication: HYPOTHYROIDISM
  2. HUMIRA [Suspect]
     Active Substance: ADALIMUMAB
     Indication: RHEUMATOID ARTHRITIS
     Route: 058
     Dates: start: 2014, end: 201607
  3. PRAVASTATIN. [Concomitant]
     Active Substance: PRAVASTATIN
     Indication: BLOOD CHOLESTEROL INCREASED
  4. BYSTOLIC [Suspect]
     Active Substance: NEBIVOLOL HYDROCHLORIDE
     Indication: HYPERTENSION
     Route: 065
     Dates: start: 201607
  5. HUMIRA [Suspect]
     Active Substance: ADALIMUMAB
     Indication: ANKYLOSING SPONDYLITIS
     Route: 058
     Dates: start: 20170410
  6. NORVASC [Concomitant]
     Active Substance: AMLODIPINE BESYLATE
     Indication: HYPERTENSION
  7. ALDACTONE [Concomitant]
     Active Substance: SPIRONOLACTONE
     Indication: HYPERTENSION

REACTIONS (17)
  - Chest X-ray abnormal [Recovered/Resolved]
  - Musculoskeletal chest pain [Recovering/Resolving]
  - Peripheral swelling [Recovered/Resolved]
  - Platelet count decreased [Unknown]
  - Bone marrow disorder [Unknown]
  - Chills [Recovered/Resolved]
  - Musculoskeletal pain [Recovering/Resolving]
  - White blood cell count increased [Recovering/Resolving]
  - Chest pain [Recovering/Resolving]
  - Pain in extremity [Recovering/Resolving]
  - Anaemia [Not Recovered/Not Resolved]
  - Thrombocytosis [Not Recovered/Not Resolved]
  - Gait disturbance [Recovered/Resolved]
  - Pain in extremity [Recovered/Resolved]
  - Biopsy bone marrow abnormal [Not Recovered/Not Resolved]
  - Therapeutic response shortened [Unknown]
  - Iron deficiency anaemia [Not Recovered/Not Resolved]

NARRATIVE: CASE EVENT DATE: 201607
